FAERS Safety Report 4818904-4 (Version None)
Quarter: 2005Q4

REPORT INFORMATION
  Report Type: 
  Country: None (occurrence: None)
  Receive Date: 20051101
  Receipt Date: 20051016
  Transmission Date: 20060501
  Serious: Yes (Hospitalization)
  Sender: FDA-Public Use
  Company Number: 2005-01650

PATIENT
  Age: 84 Year
  Sex: Female
  Weight: 55 kg

DRUGS (19)
  1. VELCADE [Suspect]
     Indication: MULTIPLE MYELOMA
     Dosage: 2.00 MG, 2/WEEK, INTRAVENOUS
     Route: 042
     Dates: start: 20050530, end: 20050721
  2. MELPHALAN (MELPHALAN) [Suspect]
     Indication: MULTIPLE MYELOMA
     Dosage: 14.00 MG QD ORAL
     Route: 048
     Dates: start: 20050530, end: 20050721
  3. PREDNISONE [Suspect]
     Indication: MULTIPLE MYELOMA
     Dosage: 90.00 MG QD ORAL
     Route: 048
     Dates: start: 20050530, end: 20050721
  4. NEOBLOC (METOPROLOL TARTRATE) [Concomitant]
  5. MICROPIRIN (ACETYLSALICYLIC ACID) [Concomitant]
  6. LAXADIN (BISACODYL) [Concomitant]
  7. BONDROMIN (BROTIZOLAM) [Concomitant]
  8. MONOLONG (ISOSORBIDE MONONITRATE) [Concomitant]
  9. RAMIPRIL [Concomitant]
  10. VITACAL (CALCIUM, VITAMIN D NOS) [Concomitant]
  11. RESPRIM (SULFAMETHOXAZOLE, TRIMETHOPRIM) [Concomitant]
  12. AREDIA [Concomitant]
  13. RECORMON (ERYTHROPOIETIN HUMAN) [Concomitant]
  14. ACETAMINOPHEN [Concomitant]
  15. PROPOXYPHENE HCL [Concomitant]
  16. OMEPRAZOLE [Concomitant]
  17. TRAMADOL HCL [Concomitant]
  18. DURAGESIC-100 [Concomitant]
  19. NEUPOGEN [Concomitant]

REACTIONS (7)
  - BLOOD GLUCOSE INCREASED [None]
  - CONFUSIONAL STATE [None]
  - HAEMOGLOBIN DECREASED [None]
  - HYPONATRAEMIA [None]
  - INAPPROPRIATE ANTIDIURETIC HORMONE SECRETION [None]
  - OEDEMA PERIPHERAL [None]
  - WHITE BLOOD CELL COUNT DECREASED [None]
